FAERS Safety Report 8296742-0 (Version None)
Quarter: 2012Q2

REPORT INFORMATION
  Report Type: 
  Country: None (occurrence: None)
  Receive Date: 20120418
  Receipt Date: 20110711
  Transmission Date: 20120825
  Serious: No
  Sender: FDA-Public Use
  Company Number: US-ASTRAZENECA-2011SE41425

PATIENT
  Age: 51 Year
  Sex: Female

DRUGS (1)
  1. NEXIUM [Suspect]
     Dosage: EVERYDAY
     Route: 048
     Dates: start: 20040101, end: 20110101

REACTIONS (3)
  - LOWER LIMB FRACTURE [None]
  - ANKLE FRACTURE [None]
  - OSTEOPENIA [None]
